FAERS Safety Report 15681480 (Version 1)
Quarter: 2018Q4

REPORT INFORMATION
  Report Type: Spontaneous
  Country: AR (occurrence: AR)
  Receive Date: 20181203
  Receipt Date: 20181203
  Transmission Date: 20190205
  Serious: Yes (Other)
  Sender: FDA-Public Use
  Company Number: AR-PFIZER INC-2018490014

PATIENT
  Age: 57 Year
  Sex: Female

DRUGS (1)
  1. XELJANZ [Suspect]
     Active Substance: TOFACITINIB CITRATE
     Indication: RHEUMATOID ARTHRITIS
     Dosage: 5 MG, 2X/DAY
     Dates: start: 20161212, end: 20180809

REACTIONS (2)
  - Skin cancer [Recovered/Resolved]
  - Arthritis [Recovered/Resolved]

NARRATIVE: CASE EVENT DATE: 201807
